FAERS Safety Report 6691486-0 (Version None)
Quarter: 2010Q2

REPORT INFORMATION
  Report Type: 
  Country: None (occurrence: None)
  Receive Date: 20100422
  Receipt Date: 20100419
  Transmission Date: 20101027
  Serious: Yes (Life-Threatening, Hospitalization)
  Sender: FDA-Public Use
  Company Number: DE-SANOFI-AVENTIS-2010SA001897

PATIENT
  Age: 47 Year
  Sex: Male
  Weight: 101 kg

DRUGS (8)
  1. LEFLUNOMIDE [Suspect]
     Route: 048
     Dates: start: 20070201, end: 20090101
  2. ETANERCEPT [Suspect]
     Dosage: DAILY DOSE: 50 / 7
     Route: 058
     Dates: start: 20080301
  3. ANTIVIRALS FOR SYSTEMIC USE [Suspect]
     Indication: HEPATITIS B
     Dosage: DAILY DOSE: 0.5
     Route: 048
     Dates: start: 20080201
  4. METHOTREXAT [Concomitant]
     Dosage: DAYILY DOSE:15 / 7
     Route: 048
     Dates: start: 20090101
  5. PREDNISOLON [Concomitant]
     Dosage: DAILY DOSE: 5-20
     Route: 048
     Dates: start: 20060101
  6. FOLIC ACID [Concomitant]
     Indication: DRUG USE FOR UNKNOWN INDICATION
  7. COLECALCIFEROL [Concomitant]
     Indication: DRUG USE FOR UNKNOWN INDICATION
  8. ANTIINFLAMMATORY/ANTIRHEUMATIC NON-STEROIDS [Concomitant]
     Indication: DRUG USE FOR UNKNOWN INDICATION
     Route: 065

REACTIONS (2)
  - GASTRIC CANCER [None]
  - GASTRIC ULCER [None]
